FAERS Safety Report 11859002 (Version 4)
Quarter: 2016Q1

REPORT INFORMATION
  Report Type: Spontaneous
  Country: GB (occurrence: GB)
  Receive Date: 20151222
  Receipt Date: 20160310
  Transmission Date: 20160526
  Serious: Yes (Other)
  Sender: FDA-Public Use
  Company Number: GB-AMGEN-GBRSP2015133505

PATIENT
  Age: 64 Year
  Sex: Female

DRUGS (1)
  1. ENBREL [Suspect]
     Active Substance: ETANERCEPT
     Indication: RHEUMATOID ARTHRITIS
     Dosage: 50 MG, WEEKLY
     Route: 065
     Dates: start: 20160121, end: 201602

REACTIONS (6)
  - Arthralgia [Unknown]
  - Back pain [Unknown]
  - Enteritis infectious [Recovering/Resolving]
  - Drug ineffective [Unknown]
  - Abdominal pain upper [Unknown]
  - Malaise [Unknown]
